FAERS Safety Report 17753525 (Version 4)
Quarter: 2020Q2

REPORT INFORMATION
  Report Type: Report from Study
  Country: US (occurrence: US)
  Receive Date: 20200506
  Receipt Date: 20200619
  Transmission Date: 20200714
  Serious: Yes (Death, Hospitalization)
  Sender: FDA-Public Use
  Company Number: US-ACTELION-A-NJ2020-202956

PATIENT
  Age: 65 Year
  Sex: Female
  Weight: 64.85 kg

DRUGS (3)
  1. VELETRI [Suspect]
     Active Substance: EPOPROSTENOL
     Indication: PULMONARY HYPERTENSION
     Dosage: 20 NG/KG, PER MIN
     Route: 042
  2. ADCIRCA [Concomitant]
     Active Substance: TADALAFIL
  3. LETAIRIS [Concomitant]
     Active Substance: AMBRISENTAN

REACTIONS (12)
  - Death [Fatal]
  - Blood pressure decreased [Unknown]
  - Oedema peripheral [Unknown]
  - Chills [Recovering/Resolving]
  - Weight fluctuation [Unknown]
  - Fatigue [Unknown]
  - Renal disorder [Unknown]
  - Feeling cold [Recovering/Resolving]
  - Fluid retention [Recovered/Resolved]
  - Unevaluable event [Unknown]
  - Dyspnoea [Unknown]
  - Fluid overload [Unknown]

NARRATIVE: CASE EVENT DATE: 20200608
